FAERS Safety Report 10009517 (Version 2)
Quarter: 2014Q2

REPORT INFORMATION
  Report Type: Report from Study
  Country: AU (occurrence: AU)
  Receive Date: 20140313
  Receipt Date: 20140401
  Transmission Date: 20141212
  Serious: Yes (Other)
  Sender: FDA-Public Use
  Company Number: PHHY2014AU030883

PATIENT
  Age: 85 Year
  Sex: Female

DRUGS (10)
  1. ACLASTA [Suspect]
     Indication: OSTEOPOROSIS
     Dosage: 5 MG, UNK
     Route: 042
     Dates: start: 20130114
  2. CALTRATE WITH VITAMIN D [Concomitant]
     Dosage: 1-2 TABLET DAILY SWALLOWED WITH LIQUID AFTER A MEAL
     Route: 048
  3. EBIXA [Concomitant]
     Dosage: 20 MG DAILY
     Route: 048
  4. NEO B12 [Concomitant]
     Dosage: 1 MG/ML, MDU
     Route: 030
  5. NORSPAN//BUPRENORPHINE [Concomitant]
     Dosage: 10 MG, WEEKLY
     Route: 062
  6. PANADEINE FORTE [Concomitant]
     Indication: PAIN
     Dosage: 1 DF, BID
     Route: 048
  7. PRISTIQ [Concomitant]
     Dosage: 50 MG, DAILY
     Route: 048
  8. RISPA [Concomitant]
     Dosage: 0.5 MG, MIDDAY
     Route: 048
  9. VISCOTEARS [Concomitant]
     Indication: DRY EYE
     Dosage: 1-2 DROPS MDU
  10. FLUARIX [Concomitant]
     Dosage: UNK UKN, UNK
     Dates: start: 20130529

REACTIONS (7)
  - Dementia [Not Recovered/Not Resolved]
  - Blood urea decreased [Unknown]
  - Blood cholesterol increased [Unknown]
  - Blood triglycerides increased [Unknown]
  - Mean cell haemoglobin concentration decreased [Unknown]
  - Neutrophil count increased [Unknown]
  - Monocyte count increased [Unknown]
